FAERS Safety Report 10220340 (Version 1)
Quarter: 2014Q2

REPORT INFORMATION
  Report Type: Spontaneous
  Country: US (occurrence: US)
  Receive Date: 20140606
  Receipt Date: 20140606
  Transmission Date: 20141212
  Serious: No
  Sender: FDA-Public Use
  Company Number: US-009507513-1405USA015492

PATIENT
  Age: 78 Year
  Sex: Female

DRUGS (2)
  1. ASMANEX TWISTHALER [Suspect]
     Dosage: 1 PUFF TWICE DAILY
     Route: 055
     Dates: start: 201302
  2. PROVENTIL [Concomitant]

REACTIONS (3)
  - Chest discomfort [Recovered/Resolved]
  - Drug dose omission [Unknown]
  - Product quality issue [Unknown]
